FAERS Safety Report 6138005-5 (Version None)
Quarter: 2009Q1

REPORT INFORMATION
  Report Type: 
  Country: None (occurrence: None)
  Receive Date: 20090331
  Receipt Date: 20090323
  Transmission Date: 20090719
  Serious: Yes (Hospitalization)
  Sender: FDA-Public Use
  Company Number: GB-ROCHE-623094

PATIENT
  Sex: Female
  Weight: 72.4 kg

DRUGS (5)
  1. GANCICLOVIR SODIUM [Suspect]
     Route: 042
  2. GANCICLOVIR [Suspect]
     Route: 048
  3. SEPTRIN [Suspect]
     Route: 065
  4. DAPSONE [Suspect]
     Route: 065
  5. CHEMOTHERAPY [Concomitant]
     Indication: ACUTE LYMPHOCYTIC LEUKAEMIA

REACTIONS (2)
  - METHAEMOGLOBINAEMIA [None]
  - NEUTROPHIL COUNT DECREASED [None]
